FAERS Safety Report 17861511 (Version 1)
Quarter: 2020Q2

REPORT INFORMATION
  Report Type: Spontaneous
  Country: ES (occurrence: ES)
  Receive Date: 20200604
  Receipt Date: 20200604
  Transmission Date: 20200714
  Serious: Yes (Other)
  Sender: FDA-Public Use
  Company Number: ES-MYLANLABS-2020M1053936

PATIENT
  Age: 91 Year
  Sex: Male
  Weight: 57.5 kg

DRUGS (3)
  1. RISPERIDONE. [Suspect]
     Active Substance: RISPERIDONE
     Indication: CONFUSIONAL STATE
     Dosage: 0,25-0-0,5
     Route: 048
     Dates: start: 20190930, end: 20191120
  2. TRAZODONA                          /00447701/ [Suspect]
     Active Substance: TRAZODONE HYDROCHLORIDE
     Indication: DEPRESSION
     Dosage: 100MG/24H
     Route: 048
     Dates: start: 20191001, end: 20191231
  3. DULOXETINE. [Suspect]
     Active Substance: DULOXETINE
     Indication: DEPRESSION
     Dosage: 30MG/24H
     Route: 048
     Dates: start: 20191001, end: 20191120

REACTIONS (1)
  - Hepatitis [Unknown]

NARRATIVE: CASE EVENT DATE: 20191113
